FAERS Safety Report 7533209-9 (Version None)
Quarter: 2011Q2

REPORT INFORMATION
  Report Type: 
  Country: None (occurrence: None)
  Receive Date: 20110608
  Receipt Date: 20030422
  Transmission Date: 20111010
  Serious: Yes (Hospitalization)
  Sender: FDA-Public Use
  Company Number: PHFR2003GB00800

PATIENT
  Sex: Male

DRUGS (1)
  1. CLOZAPINE [Suspect]
     Indication: SCHIZOPHRENIA
     Dosage: 175 MG/DAY
     Route: 048
     Dates: start: 19960422

REACTIONS (5)
  - PULMONARY TOXICITY [None]
  - OBSTRUCTION [None]
  - PNEUMONIA [None]
  - NEUTROPHIL COUNT INCREASED [None]
  - ASTHMA [None]
